FAERS Safety Report 5971327-7 (Version None)
Quarter: 2008Q4

REPORT INFORMATION
  Report Type: 
  Country: None (occurrence: None)
  Receive Date: 20081128
  Receipt Date: 20081125
  Transmission Date: 20090506
  Serious: Yes (Disabling)
  Sender: FDA-Public Use
  Company Number: PT-PFIZER INC-2008099581

PATIENT
  Age: 8 Year
  Sex: Male
  Weight: 25 kg

DRUGS (2)
  1. ZITHROMAX [Suspect]
     Dosage: DAILY DOSE:7.5ML
     Route: 048
     Dates: start: 20081120, end: 20081122
  2. BISOLVON [Concomitant]

REACTIONS (1)
  - VISUAL IMPAIRMENT [None]
